FAERS Safety Report 21390769 (Version 1)
Quarter: 2022Q3

REPORT INFORMATION
  Report Type: Spontaneous
  Country: US (occurrence: None)
  Receive Date: 20220927
  Receipt Date: 20220927
  Transmission Date: 20221027
  Serious: Yes (Hospitalization)
  Sender: FDA-Public Use
  Company Number: None

PATIENT
  Age: 57 Year
  Sex: Female

DRUGS (2)
  1. BRAFTOVI [Suspect]
     Active Substance: ENCORAFENIB
     Indication: Malignant melanoma
     Dosage: 450MG ONCE DAILY ORAL
     Route: 048
     Dates: start: 20220727
  2. MEKTOVI [Suspect]
     Active Substance: BINIMETINIB
     Indication: Malignant melanoma
     Dosage: 45MG TWICE DAILY ORAL
     Route: 048
     Dates: start: 20220727

REACTIONS (7)
  - Visual impairment [None]
  - Fatigue [None]
  - Rectal haemorrhage [None]
  - Gastric ulcer [None]
  - Haemoglobin decreased [None]
  - Retinal detachment [None]
  - Therapy interrupted [None]

NARRATIVE: CASE EVENT DATE: 20220906
